FAERS Safety Report 9848929 (Version 1)
Quarter: 2014Q1

REPORT INFORMATION
  Report Type: Spontaneous
  Country: NO (occurrence: NO)
  Receive Date: 20140128
  Receipt Date: 20140128
  Transmission Date: 20141002
  Serious: Yes (Life-Threatening, Hospitalization, Disabling)
  Sender: FDA-Public Use
  Company Number: NO-BAYER-2014-013493

PATIENT
  Age: 69 Year
  Sex: Male
  Weight: 81 kg

DRUGS (14)
  1. ACETYLSALICYLIC ACID (} 100 MG, FAST RELEASE) [Suspect]
     Indication: ACUTE MYOCARDIAL INFARCTION
     Dosage: 300 MG ORALLY, THERAFTER 75 MG ORALLY
     Route: 048
     Dates: start: 20131225, end: 20131225
  2. METALYSE [Suspect]
     Indication: ACUTE MYOCARDIAL INFARCTION
     Dosage: STANDARD DOSE REDUCED FROM 9000 TO 8000 IU BECAUSE OF THE LARGE DOSE OF BRILIQUE THAT WAS GIVEN.
     Route: 040
     Dates: start: 20131225, end: 20131225
  3. KLEXANE [Suspect]
     Indication: ACUTE MYOCARDIAL INFARCTION
     Dosage: FIRST 30 MG INTRAVENOUSLY, THEREAFTER 80 MG SUBCUTANOUSLY
     Route: 042
     Dates: start: 20131225, end: 20131225
  4. KLEXANE [Suspect]
     Indication: ACUTE MYOCARDIAL INFARCTION
     Dosage: 80 MG, UNK
     Route: 058
     Dates: start: 20131225, end: 20131225
  5. BRILIQUE [Suspect]
     Indication: ACUTE MYOCARDIAL INFARCTION
     Dosage: DOUBLE LOADING DOSE (90 MG X 4) GIVEN BY MISTAKE.
     Route: 048
     Dates: start: 20131225, end: 20131225
  6. DUODART [Concomitant]
     Indication: BENIGN PROSTATIC HYPERPLASIA
     Route: 048
  7. SIMVASTATIN [Concomitant]
     Route: 048
  8. SYMBICORT TU [Concomitant]
     Indication: CHRONIC OBSTRUCTIVE PULMONARY DISEASE
     Route: 055
  9. GLYCERYL TRINITRATE [Concomitant]
     Indication: ACUTE MYOCARDIAL INFARCTION
     Route: 041
     Dates: start: 20131225, end: 20131225
  10. MORPHINE [Concomitant]
     Indication: ACUTE MYOCARDIAL INFARCTION
     Dosage: 2.5 MG, QID
     Route: 040
     Dates: start: 20131225
  11. SPIRIVA [Concomitant]
     Indication: CHRONIC OBSTRUCTIVE PULMONARY DISEASE
     Route: 055
  12. SELOKEN [Concomitant]
     Indication: ACUTE MYOCARDIAL INFARCTION
     Dosage: 25 MG ORALLY AND THEREAFTER 2,5 MG INTRAVENOUSLY
     Dates: start: 20131225, end: 20131225
  13. AFIPRAN [Concomitant]
     Indication: ACUTE MYOCARDIAL INFARCTION
     Dates: start: 20131225
  14. SELOZOK [Concomitant]
     Indication: ACUTE MYOCARDIAL INFARCTION
     Route: 048
     Dates: start: 20131225

REACTIONS (2)
  - Cerebral haemorrhage [Recovered/Resolved with Sequelae]
  - Monoplegia [Not Recovered/Not Resolved]
